FAERS Safety Report 8958245 (Version 1)
Quarter: 2012Q4

REPORT INFORMATION
  Report Type: 
  Country: FR (occurrence: FR)
  Receive Date: 20121211
  Receipt Date: 20121211
  Transmission Date: 20130627
  Serious: Yes (Life-Threatening)
  Sender: FDA-Public Use
  Company Number: FR-ASTRAZENECA-2012SE92092

PATIENT
  Sex: Male

DRUGS (2)
  1. BRILIQUE [Suspect]
     Route: 048
  2. BETA-BLOCKER [Concomitant]

REACTIONS (3)
  - Cardiac arrest [Recovered/Resolved]
  - Cardiac arrest [Recovered/Resolved]
  - Syncope [Recovered/Resolved]
